FAERS Safety Report 5374294-2 (Version None)
Quarter: 2007Q2

REPORT INFORMATION
  Report Type: 
  Country: None (occurrence: None)
  Receive Date: 20070629
  Receipt Date: 20070420
  Transmission Date: 20071010
  Serious: Yes (Hospitalization)
  Sender: FDA-Public Use
  Company Number: JP-ROCHE-333310

PATIENT
  Age: 3 Year
  Sex: Female
  Weight: 14.8 kg

DRUGS (6)
  1. TAMIFLU [Suspect]
     Route: 048
     Dates: start: 20030124
  2. THEO-DUR [Suspect]
     Indication: INFANTILE ASTHMA
     Dosage: DOSE FORM: DRY SYRUP.
     Route: 048
     Dates: start: 20030120
  3. MEPTIN [Concomitant]
     Route: 048
     Dates: start: 20030120
  4. BISOLVON [Concomitant]
     Dosage: DOSE FORM: FINE GRANULE.
     Route: 048
     Dates: start: 20030120
  5. HOKUNALIN [Concomitant]
     Dosage: DOSSE FORM: TAPE.
     Route: 048
     Dates: start: 20030120
  6. BROCIN [Concomitant]
     Route: 048
     Dates: start: 20030120

REACTIONS (1)
  - DISORIENTATION [None]
